FAERS Safety Report 20315950 (Version 1)
Quarter: 2022Q1

REPORT INFORMATION
  Report Type: Other
  Country: US (occurrence: None)
  Receive Date: 20220110
  Receipt Date: 20220110
  Transmission Date: 20220423
  Serious: Yes (Death, Hospitalization)
  Sender: FDA-Public Use
  Company Number: US-MLMSERVICE-20211005-3150118-1

PATIENT
  Age: 64 Year
  Sex: Female

DRUGS (24)
  1. RITUXIMAB [Suspect]
     Active Substance: RITUXIMAB
     Indication: Acute lymphocytic leukaemia
     Route: 065
     Dates: start: 2018, end: 201810
  2. MYCOPHENOLATE MOFETIL [Suspect]
     Active Substance: MYCOPHENOLATE MOFETIL
     Indication: Prophylaxis against graft versus host disease
     Route: 065
     Dates: start: 20190927
  3. BLINATUMOMAB [Suspect]
     Active Substance: BLINATUMOMAB
     Indication: Acute lymphocytic leukaemia
     Route: 065
     Dates: start: 20181212, end: 20190409
  4. INOTUZUMAB OZOGAMICIN [Suspect]
     Active Substance: INOTUZUMAB OZOGAMICIN
     Indication: Acute lymphocytic leukaemia
     Route: 065
     Dates: start: 20190409
  5. DEXAMETHASONE [Suspect]
     Active Substance: DEXAMETHASONE
     Indication: Acute lymphocytic leukaemia
     Route: 065
     Dates: start: 20190409
  6. TACROLIMUS [Suspect]
     Active Substance: TACROLIMUS
     Indication: Prophylaxis against graft versus host disease
     Route: 065
     Dates: start: 20190927
  7. VINCRISTINE [Suspect]
     Active Substance: VINCRISTINE
     Indication: Acute lymphocytic leukaemia
     Route: 065
     Dates: start: 20190409
  8. PREDNISONE [Suspect]
     Active Substance: PREDNISONE
     Indication: Prophylaxis against graft versus host disease
     Route: 065
     Dates: start: 201911
  9. CYCLOPHOSPHAMIDE [Suspect]
     Active Substance: CYCLOPHOSPHAMIDE
     Indication: Acute lymphocytic leukaemia
     Route: 065
     Dates: start: 20190409
  10. ATOVAQUONE [Concomitant]
     Active Substance: ATOVAQUONE
     Indication: Antifungal prophylaxis
     Dates: start: 201809
  11. ATOVAQUONE [Concomitant]
     Active Substance: ATOVAQUONE
     Dates: start: 20190718, end: 20191013
  12. ATOVAQUONE [Concomitant]
     Active Substance: ATOVAQUONE
  13. CLINDAMYCIN [Concomitant]
     Active Substance: CLINDAMYCIN
     Indication: Pyrexia
     Route: 042
     Dates: start: 20190721
  14. CLINDAMYCIN [Concomitant]
     Active Substance: CLINDAMYCIN
     Route: 042
     Dates: start: 20191217
  15. ATOVAQUONE;PROGUANIL [Concomitant]
     Dates: end: 2019
  16. ACYCLOVIR [Concomitant]
     Active Substance: ACYCLOVIR
     Indication: Infection prophylaxis
  17. SULFAMETHOXAZOLE\TRIMETHOPRIM [Concomitant]
     Active Substance: SULFAMETHOXAZOLE\TRIMETHOPRIM
     Indication: Infection prophylaxis
     Dates: start: 20191104
  18. VORICONAZOLE [Concomitant]
     Active Substance: VORICONAZOLE
     Indication: Infection prophylaxis
  19. ECULIZUMAB [Concomitant]
     Active Substance: ECULIZUMAB
     Dosage: 4 WEEKLY
     Dates: start: 20191125
  20. RUXOLITINIB [Concomitant]
     Active Substance: RUXOLITINIB
  21. QUININE [Concomitant]
     Active Substance: QUININE
     Dates: start: 20200101
  22. QUININE [Concomitant]
     Active Substance: QUININE
     Dates: start: 20200102
  23. QUININE [Concomitant]
     Active Substance: QUININE
     Dates: start: 20200103
  24. DOXYCYCLINE [Concomitant]
     Active Substance: DOXYCYCLINE
     Route: 048

REACTIONS (4)
  - Sepsis [Fatal]
  - Spontaneous bacterial peritonitis [Fatal]
  - Escherichia bacteraemia [Fatal]
  - Babesiosis [Fatal]

NARRATIVE: CASE EVENT DATE: 20191205
